FAERS Safety Report 5464782-2 (Version None)
Quarter: 2007Q3

REPORT INFORMATION
  Report Type: 
  Country: None (occurrence: None)
  Receive Date: 20070921
  Receipt Date: 20070911
  Transmission Date: 20080115
  Serious: Yes (Other)
  Sender: FDA-Public Use
  Company Number: GB-PFIZER INC-2007071741

PATIENT
  Age: 72 Year
  Sex: Female

DRUGS (9)
  1. PREGABALIN [Suspect]
     Indication: NEURALGIA
     Route: 048
  2. CLOPIDOGREL [Concomitant]
  3. CO-CODAMOL [Concomitant]
  4. DICLOFENAC [Concomitant]
  5. FRUSEMIDE [Concomitant]
  6. LANSOPRAZOLE [Concomitant]
  7. MOVICOL [Concomitant]
  8. PERINDOPRIL ERBUMINE [Concomitant]
  9. TRAMADOL HCL [Concomitant]

REACTIONS (3)
  - PAIN IN EXTREMITY [None]
  - PALPITATIONS [None]
  - TINNITUS [None]
